FAERS Safety Report 24716696 (Version 1)
Quarter: 2024Q4

REPORT INFORMATION
  Report Type: Spontaneous
  Country: US (occurrence: None)
  Receive Date: 20241210
  Receipt Date: 20241210
  Transmission Date: 20250115
  Serious: Yes (Hospitalization)
  Sender: Public
  Company Number: None

PATIENT
  Age: 63 Year
  Sex: Female
  Weight: 45.7 kg

DRUGS (1)
  1. FEMARA [Suspect]
     Active Substance: LETROZOLE
     Dates: end: 20241120

REACTIONS (3)
  - Aggression [None]
  - Paranoia [None]
  - Anxiety [None]

NARRATIVE: CASE EVENT DATE: 20241120
